FAERS Safety Report 4895751-9 (Version None)
Quarter: 2006Q1

REPORT INFORMATION
  Report Type: 
  Country: None (occurrence: None)
  Receive Date: 20060124
  Receipt Date: 20060103
  Transmission Date: 20060701
  Serious: Yes (Other)
  Sender: FDA-Public Use
  Company Number: 200410504BBE

PATIENT
  Sex: Female

DRUGS (3)
  1. HYPRHO-D [Suspect]
     Indication: PREGNANCY
  2. IMMUNE GLOBULIN (HUMAN) [Suspect]
  3. IMMUNE GLOBULIN (HUMAN) [Suspect]

REACTIONS (12)
  - ADVERSE EVENT [None]
  - ANXIETY [None]
  - CONDITION AGGRAVATED [None]
  - DEPRESSION [None]
  - DRUG EXPOSURE DURING PREGNANCY [None]
  - HEADACHE [None]
  - HYPERHIDROSIS [None]
  - INSOMNIA [None]
  - MECONIUM IN AMNIOTIC FLUID [None]
  - PHARMACEUTICAL PRODUCT COMPLAINT [None]
  - STRESS [None]
  - VAGINITIS BACTERIAL [None]
